FAERS Safety Report 8565507-4 (Version None)
Quarter: 2012Q3

REPORT INFORMATION
  Report Type: 
  Country: None (occurrence: None)
  Receive Date: 20120724
  Receipt Date: 20120717
  Transmission Date: 20120928
  Serious: Yes (Other)
  Sender: FDA-Public Use
  Company Number: DSA_58563_2012

PATIENT
  Sex: Female
  Weight: 55.7924 kg

DRUGS (4)
  1. WELLBUTRIN XL [Suspect]
     Indication: DEPRESSION
     Dosage: 150 MG, QD, ORAL (300 MG, QD, ORAL)
     Route: 048
     Dates: start: 20051123
  2. WELLBUTRIN XL [Suspect]
     Indication: TOBACCO USER
     Dosage: 150 MG, QD, ORAL (300 MG, QD, ORAL)
     Route: 048
     Dates: start: 20051123
  3. ABILIFY [Suspect]
     Indication: PRODUCT USED FOR UNKNOWN INDICATION
     Dosage: 15;7.5 MG, DAILY, ORAL
     Route: 048
  4. NORCO [Suspect]
     Indication: BACK PAIN
     Dosage: 3 DAILY, ORAL
     Route: 048

REACTIONS (8)
  - CRYING [None]
  - ROAD TRAFFIC ACCIDENT [None]
  - NECK SURGERY [None]
  - UPPER LIMB FRACTURE [None]
  - HYPERTENSION [None]
  - BLOOD POTASSIUM DECREASED [None]
  - FALL [None]
  - PNEUMONIA [None]
